FAERS Safety Report 5742629-4 (Version None)
Quarter: 2008Q2

REPORT INFORMATION
  Report Type: 
  Country: None (occurrence: None)
  Receive Date: 20080519
  Receipt Date: 20080509
  Transmission Date: 20081010
  Serious: Yes (Hospitalization)
  Sender: FDA-Public Use
  Company Number: US-AMGEN-QUU273150

PATIENT
  Sex: Female

DRUGS (3)
  1. ENBREL [Suspect]
     Indication: RHEUMATOID ARTHRITIS
     Route: 058
     Dates: start: 20070401
  2. METHOTREXATE [Concomitant]
     Route: 048
     Dates: start: 19950101
  3. PLAQUENIL [Concomitant]
     Route: 048
     Dates: start: 19950101

REACTIONS (9)
  - ARTHRALGIA [None]
  - FALL [None]
  - FATIGUE [None]
  - HAEMATOMA [None]
  - HYPOAESTHESIA [None]
  - INJECTION SITE IRRITATION [None]
  - PELVIC FRACTURE [None]
  - RHEUMATOID ARTHRITIS [None]
  - STRESS [None]
